FAERS Safety Report 24440582 (Version 1)
Quarter: 2024Q4

REPORT INFORMATION
  Report Type: Report from Study
  Country: CO (occurrence: CO)
  Receive Date: 20241016
  Receipt Date: 20241016
  Transmission Date: 20250114
  Serious: Yes (Hospitalization, Other)
  Sender: ALEXION PHARMACEUTICALS
  Company Number: CO-AstraZeneca-CH-00721248A

PATIENT
  Weight: 74 kg

DRUGS (1)
  1. CALQUENCE [Suspect]
     Active Substance: ACALABRUTINIB
     Indication: Acute lymphocytic leukaemia

REACTIONS (4)
  - Haematuria [Unknown]
  - Gastrointestinal infection [Unknown]
  - Bladder mass [Unknown]
  - Calculus bladder [Unknown]
